FAERS Safety Report 8902351 (Version 1)
Quarter: 2012Q4

REPORT INFORMATION
  Report Type: 
  Country: US (occurrence: US)
  Receive Date: 20121112
  Receipt Date: 20121112
  Transmission Date: 20130627
  Serious: Yes (Other)
  Sender: FDA-Public Use
  Company Number: US-ASTRAZENECA-2012SE84073

PATIENT
  Age: 75 Year
  Sex: Male
  Weight: 83.9 kg

DRUGS (9)
  1. LISINOPRIL [Suspect]
     Indication: CARDIAC DISORDER
     Route: 048
  2. TOPROL XL [Suspect]
     Indication: HYPERTENSION
     Route: 048
  3. CRESTOR [Suspect]
     Route: 048
     Dates: start: 20121018
  4. NORVASC [Suspect]
     Indication: BLOOD PRESSURE DIASTOLIC INCREASED
     Route: 048
  5. COUMADIN [Concomitant]
     Indication: PULMONARY EMBOLISM
     Route: 048
     Dates: start: 2011
  6. EQUATE MULTIVITAMIN [Concomitant]
     Route: 048
  7. PROBIOTIC PHILIPS COLON HEALTH [Concomitant]
     Route: 048
  8. KLONOPIN [Concomitant]
     Indication: CHEST PAIN
     Route: 048
     Dates: start: 1960
  9. KLONOPIN [Concomitant]
     Indication: ANXIETY
     Route: 048
     Dates: start: 1960

REACTIONS (6)
  - Fall [Recovering/Resolving]
  - Haemorrhage [Unknown]
  - International normalised ratio increased [Unknown]
  - Excoriation [Unknown]
  - Periorbital contusion [Unknown]
  - Face injury [Unknown]
